FAERS Safety Report 5056033-8 (Version None)
Quarter: 2006Q3

REPORT INFORMATION
  Report Type: 
  Country: None (occurrence: None)
  Receive Date: 20060717
  Receipt Date: 20060626
  Transmission Date: 20061208
  Serious: Yes (Hospitalization, Other)
  Sender: FDA-Public Use
  Company Number: 163-20785-06060857

PATIENT
  Age: 29 Year
  Sex: Female
  Weight: 56 kg

DRUGS (9)
  1. THALOMID [Suspect]
     Indication: METASTATIC NEOPLASM
     Dosage: 100 MG, QD, ORAL
     Route: 048
     Dates: start: 20021209, end: 20040412
  2. TEMODAR [Suspect]
     Indication: METASTATIC NEOPLASM
     Dosage: 240 MG, ORAL
     Route: 048
     Dates: start: 20021209, end: 20040412
  3. ZOLOFT [Concomitant]
  4. PHENOXYBENZAMINE [Concomitant]
  5. NIFEDIPINE [Concomitant]
  6. ATIVAN [Concomitant]
  7. DIBENZYLINE [Concomitant]
  8. NORVASC [Concomitant]
  9. OXYCODONE HCL [Concomitant]

REACTIONS (11)
  - ASTHENIA [None]
  - BUTTOCK PAIN [None]
  - DIPLOPIA [None]
  - HYDRONEPHROSIS [None]
  - HYPONATRAEMIA [None]
  - LYMPHOPENIA [None]
  - MUSCULAR WEAKNESS [None]
  - PAIN [None]
  - PELVIC ABSCESS [None]
  - STAPHYLOCOCCAL SEPSIS [None]
  - URINARY INCONTINENCE [None]
